FAERS Safety Report 5284395-5 (Version None)
Quarter: 2007Q1

REPORT INFORMATION
  Report Type: 
  Country: None (occurrence: None)
  Receive Date: 20070328
  Receipt Date: 20060906
  Transmission Date: 20070707
  Serious: Yes (Hospitalization)
  Sender: FDA-Public Use
  Company Number: 2007SP005209

PATIENT
  Age: 59 Year
  Sex: Male

DRUGS (2)
  1. BETAMETHASONE [Suspect]
     Indication: BENIGN FAMILIAL PEMPHIGUS
     Dosage: 1.5 MG; QD; PO
     Route: 048
  2. MINOCYCLINE HCL [Concomitant]

REACTIONS (15)
  - ACINETOBACTER INFECTION [None]
  - BENIGN FAMILIAL PEMPHIGUS [None]
  - BLOOD CORTISOL DECREASED [None]
  - CANDIDIASIS [None]
  - DISEASE RECURRENCE [None]
  - DRUG INEFFECTIVE [None]
  - DRY MOUTH [None]
  - ERYTHEMA [None]
  - HYPERURICAEMIA [None]
  - PROTEUS INFECTION [None]
  - SKIN EROSION [None]
  - SKIN ODOUR ABNORMAL [None]
  - STAPHYLOCOCCAL INFECTION [None]
  - STREPTOCOCCAL INFECTION [None]
  - TINEA INFECTION [None]
